FAERS Safety Report 16650286 (Version 1)
Quarter: 2019Q3

REPORT INFORMATION
  Report Type: Report from Study
  Country: CA (occurrence: CA)
  Receive Date: 20190731
  Receipt Date: 20190731
  Transmission Date: 20191004
  Serious: Yes (Death, Other)
  Sender: FDA-Public Use
  Company Number: CA-ORION CORPORATION ORION PHARMA-TREX2019-2538

PATIENT
  Age: 72 Year
  Sex: Male
  Weight: 87 kg

DRUGS (14)
  1. METHOTREXATE (TRADE NAME UNKNOWN) [Suspect]
     Active Substance: METHOTREXATE
     Indication: PRODUCT USED FOR UNKNOWN INDICATION
     Route: 065
  2. ACTEMRA [Suspect]
     Active Substance: TOCILIZUMAB
     Route: 042
  3. ISOSORBIDE MONONITRATE. [Concomitant]
     Active Substance: ISOSORBIDE MONONITRATE
     Route: 065
  4. NEXIUM [Concomitant]
     Active Substance: ESOMEPRAZOLE MAGNESIUM
     Route: 065
  5. ACTEMRA [Suspect]
     Active Substance: TOCILIZUMAB
     Route: 042
  6. SYSTANE (HYPROMELLOSE 2910 (4000 MPA.S)) [Suspect]
     Active Substance: HYPROMELLOSE 2910 (4000 MPA.S)
     Indication: NASAL CRUSTING
     Route: 045
  7. AMLODIPINE BESILATE [Suspect]
     Active Substance: AMLODIPINE BESYLATE
     Indication: PRODUCT USED FOR UNKNOWN INDICATION
     Route: 065
  8. ASAPHEN [Concomitant]
     Active Substance: ASPIRIN
     Route: 065
  9. ACTEMRA [Suspect]
     Active Substance: TOCILIZUMAB
     Route: 042
  10. FOLIC ACID. [Concomitant]
     Active Substance: FOLIC ACID
     Route: 065
  11. ACTEMRA [Suspect]
     Active Substance: TOCILIZUMAB
     Indication: RHEUMATOID ARTHRITIS
     Route: 042
  12. ACTEMRA [Suspect]
     Active Substance: TOCILIZUMAB
     Route: 042
  13. ACTEMRA [Suspect]
     Active Substance: TOCILIZUMAB
     Route: 042
  14. AMLODIPINE BESILATE [Concomitant]
     Active Substance: AMLODIPINE BESYLATE
     Route: 065

REACTIONS (39)
  - Blood pressure systolic increased [Fatal]
  - Chest discomfort [Fatal]
  - Poor venous access [Fatal]
  - Pulmonary fibrosis [Fatal]
  - Skin lesion [Fatal]
  - Sputum discoloured [Fatal]
  - Tooth fracture [Fatal]
  - Acne [Fatal]
  - Dry skin [Fatal]
  - Epistaxis [Fatal]
  - Oropharyngeal pain [Fatal]
  - Cough [Fatal]
  - Nasal congestion [Fatal]
  - Nasal crusting [Fatal]
  - Blood pressure increased [Fatal]
  - Neck pain [Fatal]
  - Septic arthritis staphylococcal [Fatal]
  - Mass [Fatal]
  - Drug ineffective [Fatal]
  - Body temperature decreased [Fatal]
  - Hypoaesthesia [Fatal]
  - Pruritus [Fatal]
  - Rhinorrhoea [Fatal]
  - White blood cell count decreased [Fatal]
  - Blood pressure diastolic decreased [Fatal]
  - Excessive cerumen production [Fatal]
  - Groin pain [Fatal]
  - Hypotension [Fatal]
  - Nasopharyngitis [Fatal]
  - Erythema [Fatal]
  - Heart rate decreased [Fatal]
  - Oedema peripheral [Fatal]
  - Peripheral coldness [Fatal]
  - Platelet count decreased [Fatal]
  - Arthralgia [Fatal]
  - Ear pain [Fatal]
  - Essential tremor [Fatal]
  - Peripheral swelling [Fatal]
  - Pneumonia [Fatal]
